FAERS Safety Report 14950676 (Version 1)
Quarter: 2018Q2

REPORT INFORMATION
  Report Type: Report from Study
  Country: DE (occurrence: DE)
  Receive Date: 20180530
  Receipt Date: 20180530
  Transmission Date: 20180711
  Serious: Yes (Hospitalization, Other)
  Sender: FDA-Public Use
  Company Number: PHHY2017DE047639

PATIENT
  Age: 62 Year
  Sex: Male
  Weight: 78.8 kg

DRUGS (3)
  1. JAKAVI [Suspect]
     Active Substance: RUXOLITINIB
     Indication: MYELOPROLIFERATIVE NEOPLASM
     Dosage: 35 MG, QD
     Route: 048
     Dates: start: 20141017
  2. JAKAVI [Suspect]
     Active Substance: RUXOLITINIB
     Indication: MYELOFIBROSIS
  3. ACETYLSALICYLIC ACID [Suspect]
     Active Substance: ASPIRIN
     Indication: PRODUCT USED FOR UNKNOWN INDICATION
     Route: 065

REACTIONS (14)
  - Dehydration [Recovered/Resolved]
  - Product use in unapproved indication [Unknown]
  - Upper gastrointestinal haemorrhage [Recovered/Resolved]
  - Epilepsy [Recovered/Resolved]
  - Dehydration [Recovered/Resolved]
  - Alcohol withdrawal syndrome [Recovered/Resolved]
  - Electrolyte imbalance [Recovered/Resolved]
  - Drug abuse [Recovered/Resolved]
  - Osmotic demyelination syndrome [Recovered/Resolved]
  - Gastric ulcer [Recovered/Resolved]
  - Electrolyte imbalance [Recovered/Resolved]
  - Slow speech [Unknown]
  - Epilepsy [Recovered/Resolved]
  - Haemoglobin decreased [Recovered/Resolved with Sequelae]

NARRATIVE: CASE EVENT DATE: 20150615
